FAERS Safety Report 7727528-0 (Version None)
Quarter: 2011Q3

REPORT INFORMATION
  Report Type: 
  Country: None (occurrence: None)
  Receive Date: 20110902
  Receipt Date: 20110819
  Transmission Date: 20111222
  Serious: Yes (Hospitalization)
  Sender: FDA-Public Use
  Company Number: KR-PFIZER INC-2011019373

PATIENT
  Sex: Female
  Weight: 42.3 kg

DRUGS (2)
  1. PF-02341066 [Suspect]
     Indication: NON-SMALL CELL LUNG CANCER
     Dosage: 250 MG, 2X/DAY, CONTINUOUS
     Route: 048
     Dates: start: 20101110, end: 20110126
  2. MAGNESIUM OXIDE [Concomitant]
     Indication: CONSTIPATION
     Dosage: 250 MG, 3X/DAY
     Route: 048
     Dates: start: 20101013

REACTIONS (1)
  - ABSCESS [None]
